FAERS Safety Report 13521411 (Version 5)
Quarter: 2018Q1

REPORT INFORMATION
  Report Type: Spontaneous
  Country: CZ (occurrence: CZ)
  Receive Date: 20170508
  Receipt Date: 20180316
  Transmission Date: 20180508
  Serious: Yes (Life-Threatening, Hospitalization, Disabling)
  Sender: FDA-Public Use
  Company Number: CZ-ROCHE-1930159

PATIENT
  Age: 67 Year
  Sex: Male
  Weight: 80 kg

DRUGS (6)
  1. TENSIOMIN [Concomitant]
     Active Substance: CAPTOPRIL
     Indication: HYPERTENSION
     Route: 065
  2. EBRANTIL [Concomitant]
     Active Substance: URAPIDIL
     Indication: ACCELERATED HYPERTENSION
     Dosage: FOR 1 DAY
     Route: 042
     Dates: start: 20170427
  3. AMLODIPINE [Concomitant]
     Active Substance: AMLODIPINE BESYLATE
     Indication: HYPERTENSION
     Route: 048
  4. IOMERON [Concomitant]
     Active Substance: IOMEPROL
     Dosage: 400 UNIT NOT REPORTED (60 ML)S
     Route: 065
     Dates: start: 20170427
  5. ACTILYSE [Suspect]
     Active Substance: ALTEPLASE
     Indication: ISCHAEMIC STROKE
     Dosage: 50 MILLIGRAM AND 20 MILIGRAM
     Route: 042
     Dates: start: 20170427, end: 20170427
  6. DETRALEX [Concomitant]
     Active Substance: DIOSMIN\HESPERIDIN
     Route: 065

REACTIONS (6)
  - Angioedema [Recovered/Resolved]
  - Soft tissue swelling [Recovered/Resolved]
  - Anaphylactic reaction [Recovered/Resolved]
  - Lung disorder [Not Recovered/Not Resolved]
  - Product quality issue [Unknown]
  - Obstructive airways disorder [Recovered/Resolved]

NARRATIVE: CASE EVENT DATE: 20170427
